FAERS Safety Report 7966952 (Version 2)
Quarter: 2013Q3

REPORT INFORMATION
  Report Type: Report from Study
  Country: DE (occurrence: DE)
  Receive Date: 20110531
  Receipt Date: 20130722
  Transmission Date: 20140515
  Serious: Yes (Hospitalization)
  Sender: FDA-Public Use
  Company Number: DE-ROCHE-779663

PATIENT
  Age: 63 Year
  Sex: Male
  Weight: 82 kg

DRUGS (9)
  1. PEG-INTERFERON ALFA 2A [Suspect]
     Indication: CHRONIC HEPATITIS C
     Route: 058
  2. RIBAVIRIN [Suspect]
     Indication: CHRONIC HEPATITIS C
     Route: 048
  3. L-THYROXINE [Concomitant]
  4. URSODEOXYCHOLIC ACID [Concomitant]
     Route: 065
  5. CALCIMAGON-D3 [Concomitant]
  6. MYFORTIC [Concomitant]
     Route: 065
  7. PANTOZOL (GERMANY) [Concomitant]
     Route: 065
  8. SANDIMMUN [Concomitant]
     Route: 065
  9. DELIX (GERMANY) [Concomitant]
     Route: 065

REACTIONS (2)
  - Anaemia [Recovered/Resolved]
  - Granuloma [Recovered/Resolved]
